FAERS Safety Report 7967786-0 (Version None)
Quarter: 2011Q4

REPORT INFORMATION
  Report Type: 
  Country: None (occurrence: None)
  Receive Date: 20111209
  Receipt Date: 20111130
  Transmission Date: 20120403
  Serious: Yes (Other)
  Sender: FDA-Public Use
  Company Number: US-BAYER-201021045NA

PATIENT
  Age: 25 Year
  Sex: Female

DRUGS (1)
  1. MIRENA [Suspect]
     Indication: INTRA-UTERINE CONTRACEPTIVE DEVICE
     Dosage: FREQUENCY: CONTINUOUS, INSERTED IN DEC-2009 OR IN JAN-2010
     Route: 015

REACTIONS (20)
  - VOMITING IN PREGNANCY [None]
  - PROCEDURAL PAIN [None]
  - DIARRHOEA [None]
  - PREGNANCY WITH CONTRACEPTIVE DEVICE [None]
  - ABDOMINAL PAIN [None]
  - RENAL PAIN [None]
  - DEVICE DISLOCATION [None]
  - MALAISE [None]
  - FEELING OF BODY TEMPERATURE CHANGE [None]
  - HOSTILITY [None]
  - DEPRESSION [None]
  - DIZZINESS [None]
  - MOOD SWINGS [None]
  - ANGER [None]
  - BIPOLAR DISORDER [None]
  - POST PROCEDURAL HAEMORRHAGE [None]
  - HEADACHE [None]
  - TREMOR [None]
  - NAUSEA [None]
  - ABORTION SPONTANEOUS [None]
